FAERS Safety Report 8025518-4 (Version None)
Quarter: 2012Q1

REPORT INFORMATION
  Report Type: 
  Country: None (occurrence: None)
  Receive Date: 20120105
  Receipt Date: 20120104
  Transmission Date: 20120608
  Serious: Yes (Death, Hospitalization)
  Sender: FDA-Public Use
  Company Number: US-AMGEN-USASP2011023108

PATIENT
  Age: 57 Year
  Sex: Female
  Weight: 63.7 kg

DRUGS (11)
  1. B COMPLEX                          /00212701/ [Concomitant]
     Dosage: UNK UNK, BID
  2. EPA                                /01403701/ [Concomitant]
     Dosage: UNK UNK, BID
  3. FENTANYL [Concomitant]
     Dosage: 150 MUG, UNK
  4. DILAUDID [Concomitant]
     Indication: PAIN
     Dosage: 8 MG, Q3H
  5. NPLATE [Suspect]
     Indication: PRODUCT USED FOR UNKNOWN INDICATION
     Dates: start: 20100429, end: 20100506
  6. VITAMIN D [Concomitant]
     Dosage: 5000 UNK, UNK
  7. MELATONIN [Concomitant]
     Dosage: 1 UNK, UNK
  8. MEGACE [Concomitant]
  9. L-GLUTAMINE                        /00503401/ [Concomitant]
  10. DURAGESIC-100 [Concomitant]
  11. SENNA-S                            /00936101/ [Concomitant]
     Dosage: 1 UNK, UNK

REACTIONS (8)
  - MALNUTRITION [None]
  - EROSIVE OESOPHAGITIS [None]
  - NEOPLASM MALIGNANT [None]
  - BREAST CANCER METASTATIC [None]
  - TRANSAMINASES INCREASED [None]
  - WEIGHT DECREASED [None]
  - BOWEL MOVEMENT IRREGULARITY [None]
  - CACHEXIA [None]
